FAERS Safety Report 13650434 (Version 1)
Quarter: 2017Q2

REPORT INFORMATION
  Report Type: Spontaneous
  Country: PT (occurrence: PT)
  Receive Date: 20170614
  Receipt Date: 20170614
  Transmission Date: 20170830
  Serious: Yes (Other)
  Sender: FDA-Public Use
  Company Number: PHHY2017PT082991

PATIENT
  Sex: Male

DRUGS (3)
  1. XALKORI [Interacting]
     Active Substance: CRIZOTINIB
     Indication: BLOOD ALKALINE PHOSPHATASE INCREASED
  2. CARBAMAZEPINE. [Suspect]
     Active Substance: CARBAMAZEPINE
     Indication: EPILEPSY
     Dosage: 200 MG, BID
     Route: 065
  3. XALKORI [Interacting]
     Active Substance: CRIZOTINIB
     Indication: LUNG ADENOCARCINOMA STAGE IV
     Dosage: 250 MG, BID
     Route: 048
     Dates: start: 20170317

REACTIONS (5)
  - Disease progression [Unknown]
  - Drug level decreased [Unknown]
  - Therapy non-responder [Unknown]
  - Drug interaction [Unknown]
  - Lung adenocarcinoma [Unknown]
